FAERS Safety Report 8544819-4 (Version None)
Quarter: 2012Q3

REPORT INFORMATION
  Report Type: 
  Country: None (occurrence: None)
  Receive Date: 20120727
  Receipt Date: 20120726
  Transmission Date: 20120928
  Serious: Yes (Death)
  Sender: FDA-Public Use
  Company Number: CN-ROCHE-1089719

PATIENT
  Age: 46 Year
  Sex: Male
  Weight: 180 kg

DRUGS (2)
  1. IRINOTECAN HCL [Concomitant]
     Indication: GASTROINTESTINAL CARCINOMA
  2. AVASTIN [Suspect]
     Indication: GASTROINTESTINAL CARCINOMA
     Dates: start: 20110101

REACTIONS (1)
  - DISEASE PROGRESSION [None]
